FAERS Safety Report 6673113-1 (Version None)
Quarter: 2010Q2

REPORT INFORMATION
  Report Type: 
  Country: None (occurrence: None)
  Receive Date: 20100408
  Receipt Date: 20100330
  Transmission Date: 20101027
  Serious: Yes (Hospitalization)
  Sender: FDA-Public Use
  Company Number: CA-JNJFOC-20100400805

PATIENT
  Sex: Male
  Weight: 65 kg

DRUGS (9)
  1. REMICADE [Suspect]
     Indication: COLITIS ULCERATIVE
     Route: 042
  2. OMEPRAZOLE [Concomitant]
  3. RAMIPRIL [Concomitant]
  4. WARFARIN SODIUM [Concomitant]
  5. FERROUS SULFATE TAB [Concomitant]
  6. VITAMIN D [Concomitant]
  7. FOLIC ACID [Concomitant]
  8. VITAMIN B-12 [Concomitant]
  9. CALCIUM [Concomitant]

REACTIONS (2)
  - INTESTINAL OPERATION [None]
  - POSTOPERATIVE WOUND INFECTION [None]
